FAERS Safety Report 5901773-9 (Version None)
Quarter: 2008Q3

REPORT INFORMATION
  Report Type: 
  Country: None (occurrence: None)
  Receive Date: 20080929
  Receipt Date: 20080926
  Transmission Date: 20090109
  Serious: Yes (Other)
  Sender: FDA-Public Use
  Company Number: GB-BRISTOL-MYERS SQUIBB COMPANY-14348965

PATIENT
  Sex: Male

DRUGS (1)
  1. HYDREA [Suspect]
     Indication: MYELOPROLIFERATIVE DISORDER

REACTIONS (1)
  - CEREBROVASCULAR ACCIDENT [None]
